FAERS Safety Report 4515592-1 (Version None)
Quarter: 2004Q4

REPORT INFORMATION
  Report Type: 
  Country: None (occurrence: None)
  Receive Date: 20041126
  Receipt Date: 20041116
  Transmission Date: 20050328
  Serious: Yes (Death, Life-Threatening, Hospitalization, Other)
  Sender: FDA-Public Use
  Company Number: 2004078500

PATIENT
  Age: 82 Year
  Sex: Male
  Weight: 63 kg

DRUGS (9)
  1. DIFLUCAN [Suspect]
     Indication: FUNGAL INFECTION
     Dosage: 200 MG (200 MG, 1 IN 1 D), INTRAVENOUS
     Route: 042
     Dates: start: 20040910, end: 20041011
  2. FAMOTIDINE [Concomitant]
  3. AMINO ACIDS/ELECTROLYTES/GLUCOSE/VITAMINS (AMINO ACIDS NOS, ELECTROLYT [Concomitant]
  4. MINERAL TAB [Concomitant]
  5. INTRAFAT (GLYCEROL, PHOSPHOLIPIDS, SOYA OIL) [Concomitant]
  6. BUPRENORPHINE HYDROCHLORIDE [Concomitant]
  7. DEXAMETHASONE SODIUM PHOSPHATE [Concomitant]
  8. MIDAZOLAM HCL [Concomitant]
  9. UNACID (AMPICILLIN SODIUM, SULBACTAM SODIUM) [Concomitant]

REACTIONS (4)
  - BLOOD PRESSURE DECREASED [None]
  - SEPSIS [None]
  - STEVENS-JOHNSON SYNDROME [None]
  - TOXIC EPIDERMAL NECROLYSIS [None]
